FAERS Safety Report 4767818-7 (Version None)
Quarter: 2005Q3

REPORT INFORMATION
  Report Type: 
  Country: None (occurrence: None)
  Receive Date: 20050913
  Receipt Date: 20050829
  Transmission Date: 20060218
  Serious: Yes (Other)
  Sender: FDA-Public Use
  Company Number: DSA_26934_2005

PATIENT
  Sex: Female

DRUGS (1)
  1. ATIVAN [Suspect]
     Dosage: 1 MG Q DAY PO
     Route: 048

REACTIONS (4)
  - ABNORMAL BEHAVIOUR [None]
  - GLAUCOMA [None]
  - SEDATION [None]
  - URINARY INCONTINENCE [None]
